FAERS Safety Report 15038068 (Version 1)
Quarter: 2018Q2

REPORT INFORMATION
  Report Type: Spontaneous
  Country: NL (occurrence: NL)
  Receive Date: 20180620
  Receipt Date: 20180620
  Transmission Date: 20180711
  Serious: Yes (Other)
  Sender: FDA-Public Use
  Company Number: NL-TEVA-2018-NL-910217

PATIENT
  Age: 64 Year
  Sex: Female
  Weight: 90 kg

DRUGS (2)
  1. TAMOXIFEN TABLET 20MG TABLET, 20 MG (MILLIGRAM) [Suspect]
     Active Substance: TAMOXIFEN
     Indication: BREAST CANCER
     Route: 065
     Dates: start: 201705
  2. CALCIUM/VITAMINE D3 KAUWTABLET 500 MG/440IE SANDOZ [Concomitant]
     Route: 065

REACTIONS (4)
  - Bone pain [Recovering/Resolving]
  - Condition aggravated [Not Recovered/Not Resolved]
  - Deep vein thrombosis [Recovered/Resolved with Sequelae]
  - Back pain [Recovering/Resolving]

NARRATIVE: CASE EVENT DATE: 201705
